FAERS Safety Report 5209249-1 (Version None)
Quarter: 2007Q1

REPORT INFORMATION
  Report Type: 
  Country: None (occurrence: None)
  Receive Date: 20070116
  Receipt Date: 20070105
  Transmission Date: 20070707
  Serious: Yes (Other)
  Sender: FDA-Public Use
  Company Number: PHBS2007IT00618

PATIENT
  Age: 18 Year
  Sex: Male
  Weight: 130 kg

DRUGS (6)
  1. CLOZAPINE [Suspect]
     Indication: FRAGILE X SYNDROME
     Dosage: 450 MG/D
  2. CLOZAPINE [Suspect]
     Dosage: 650 MG/D
  3. CLOZAPINE [Suspect]
     Dosage: 450 MG/D
  4. CLOZAPINE [Suspect]
     Dosage: 400 MG/D
  5. LEVOMEPROMAZINE [Suspect]
     Indication: FRAGILE X SYNDROME
     Dosage: 200 MG/D
  6. AMISULPRIDE [Concomitant]
     Dosage: 1200 MG/D

REACTIONS (3)
  - DRUG INTERACTION [None]
  - DRUG LEVEL DECREASED [None]
  - DRUG LEVEL INCREASED [None]
